FAERS Safety Report 8850975 (Version 3)
Quarter: 2012Q4

REPORT INFORMATION
  Report Type: Report from Study
  Country: AU (occurrence: AU)
  Receive Date: 20121019
  Receipt Date: 20121210
  Transmission Date: 20130627
  Serious: Yes (Hospitalization)
  Sender: FDA-Public Use
  Company Number: AU-JNJFOC-20121006968

PATIENT
  Age: 20 Year
  Sex: Male
  Weight: 100 kg

DRUGS (6)
  1. INVEGA SUSTENNA [Suspect]
     Indication: SCHIZOPHRENIA
     Route: 030
     Dates: start: 20111005
  2. INVEGA SUSTENNA [Suspect]
     Indication: SCHIZOPHRENIA
     Route: 030
     Dates: start: 20121010, end: 20121010
  3. OLANZAPINE [Concomitant]
     Indication: PSYCHOTIC DISORDER
     Route: 065
     Dates: start: 20120912, end: 20121010
  4. OLANZAPINE [Concomitant]
     Indication: PSYCHOTIC DISORDER
     Route: 065
     Dates: start: 20121010
  5. OLANZAPINE [Concomitant]
     Indication: STRESS
     Route: 065
     Dates: start: 20120912, end: 20121010
  6. OLANZAPINE [Concomitant]
     Indication: STRESS
     Route: 065
     Dates: start: 20121010

REACTIONS (1)
  - Psychotic disorder [Recovering/Resolving]
